FAERS Safety Report 10642687 (Version 1)
Quarter: 2014Q4

REPORT INFORMATION
  Report Type: Spontaneous
  Country: US (occurrence: None)
  Receive Date: 20141121
  Receipt Date: 20141121
  Transmission Date: 20150529
  Serious: No
  Sender: FDA-Public Use
  Company Number: 163-10004-14064227

PATIENT
  Age: 42 Year

DRUGS (4)
  1. MOBIC (MELOXICAM) (UNKNOWN) [Concomitant]
  2. FLEXERIL (CYCLOBENZAPRINE HYDROCHLORIDE) (UNKNOWN) [Concomitant]
  3. OTEZLA [Suspect]
     Active Substance: APREMILAST
     Indication: PSORIATIC ARTHROPATHY
     Dosage: 30 MG, 1 IN 1 D, PO
     Route: 048
     Dates: start: 20140528
  4. CENTRUM (UNKNOWN) [Concomitant]

REACTIONS (1)
  - Abdominal discomfort [None]
